FAERS Safety Report 17506207 (Version 1)
Quarter: 2020Q1

REPORT INFORMATION
  Report Type: Spontaneous
  Country: US (occurrence: US)
  Receive Date: 20200305
  Receipt Date: 20200305
  Transmission Date: 20200409
  Serious: No
  Sender: FDA-Public Use
  Company Number: US-ROCHE-2399527

PATIENT
  Sex: Male

DRUGS (3)
  1. HYDROXYZINE [Concomitant]
     Active Substance: HYDROXYZINE HYDROCHLORIDE
  2. DOXYCYCLINE. [Concomitant]
     Active Substance: DOXYCYCLINE
  3. XOLAIR [Suspect]
     Active Substance: OMALIZUMAB
     Indication: CHRONIC SPONTANEOUS URTICARIA
     Dosage: GIVEN EVERY 6-7 WEEKS
     Route: 065

REACTIONS (8)
  - Intentional product use issue [Unknown]
  - Off label use [Unknown]
  - Pruritus [Unknown]
  - Oral herpes [Unknown]
  - Erythema annulare [Unknown]
  - Dermatitis contact [Unknown]
  - Erythema migrans [Unknown]
  - Arthropod bite [Unknown]
